FAERS Safety Report 16708538 (Version 2)
Quarter: 2019Q3

REPORT INFORMATION
  Report Type: Spontaneous
  Country: DE (occurrence: DE)
  Receive Date: 20190816
  Receipt Date: 20190820
  Transmission Date: 20191004
  Serious: Yes (Death, Life-Threatening, Hospitalization, Other)
  Sender: FDA-Public Use
  Company Number: DE-UCBSA-2019033515

PATIENT
  Sex: Male

DRUGS (4)
  1. NOVALGIN (METAMIZOLE SODIUM) [Suspect]
     Active Substance: METAMIZOLE SODIUM
     Indication: PRODUCT USED FOR UNKNOWN INDICATION
     Dosage: UNK
  2. IPILIMUMAB [Suspect]
     Active Substance: IPILIMUMAB
     Indication: MALIGNANT MELANOMA
     Dosage: EVERY 3CYCLES
     Route: 042
     Dates: start: 201904, end: 20190522
  3. LEVETIRACETAM. [Suspect]
     Active Substance: LEVETIRACETAM
     Indication: PRODUCT USED FOR UNKNOWN INDICATION
     Dosage: UNK
  4. NIVOLUMAB [Suspect]
     Active Substance: NIVOLUMAB
     Indication: MALIGNANT MELANOMA
     Dosage: EVERY 3CYCLES
     Route: 042
     Dates: start: 201904, end: 20190522

REACTIONS (6)
  - Toxic epidermal necrolysis [Fatal]
  - Autoimmune hepatitis [Unknown]
  - Pneumonia [Unknown]
  - Pancytopenia [Unknown]
  - Cardiogenic shock [Fatal]
  - Iris adhesions [Unknown]

NARRATIVE: CASE EVENT DATE: 20190529
